FAERS Safety Report 9223163 (Version 4)
Quarter: 2013Q2

REPORT INFORMATION
  Report Type: Spontaneous
  Country: FR (occurrence: FR)
  Receive Date: 20130410
  Receipt Date: 20130506
  Transmission Date: 20140414
  Serious: Yes (Disabling)
  Sender: FDA-Public Use
  Company Number: FR-TEVA-396571ISR

PATIENT
  Sex: Male

DRUGS (1)
  1. LANSOPRAZOLE TEVA SANTE 15 MG [Suspect]
     Indication: OESOPHAGITIS ULCERATIVE
     Route: 048
     Dates: start: 20121030

REACTIONS (7)
  - Arthralgia [Recovering/Resolving]
  - Psoriasis [Recovered/Resolved with Sequelae]
  - Toxicity to various agents [Unknown]
  - Insomnia [Unknown]
  - Transaminases increased [Unknown]
  - Poor quality sleep [Unknown]
  - Eczema [Recovered/Resolved with Sequelae]
